FAERS Safety Report 6638450-5 (Version None)
Quarter: 2010Q1

REPORT INFORMATION
  Report Type: 
  Country: None (occurrence: None)
  Receive Date: 20100316
  Receipt Date: 20100316
  Transmission Date: 20100710
  Serious: Yes (Hospitalization, Other)
  Sender: FDA-Public Use
  Company Number: None

PATIENT
  Age: 84 Year
  Sex: Female
  Weight: 74.3899 kg

DRUGS (2)
  1. FUROSEMIDE [Suspect]
     Indication: JOINT SWELLING
     Dosage: 1 TAB EVERY MORNING
     Dates: start: 20090101, end: 20100101
  2. FUROSEMIDE [Suspect]
     Indication: OEDEMA PERIPHERAL
     Dosage: 1 TAB EVERY MORNING
     Dates: start: 20090101, end: 20100101

REACTIONS (2)
  - ASTHENIA [None]
  - DYSSTASIA [None]
